FAERS Safety Report 6334904-X (Version None)
Quarter: 2009Q3

REPORT INFORMATION
  Report Type: 
  Country: None (occurrence: None)
  Receive Date: 20090827
  Receipt Date: 20090817
  Transmission Date: 20100115
  Serious: Yes (Hospitalization)
  Sender: FDA-Public Use
  Company Number: 2009AL003736

PATIENT
  Age: 62 Year
  Sex: Female

DRUGS (75)
  1. DIGOXIN [Suspect]
     Dosage: PO
     Route: 048
  2. ZAROXOLYN [Concomitant]
  3. ACCUPRIL [Concomitant]
  4. LASIX [Concomitant]
  5. OXYCONTIN [Concomitant]
  6. ADVAIR HFA [Concomitant]
  7. AMBIEN [Concomitant]
  8. SOMA [Concomitant]
  9. ALDACTONE [Concomitant]
  10. PERCOCET [Concomitant]
  11. CLIMARA [Concomitant]
  12. ZOCOR [Concomitant]
  13. NEXIUM [Concomitant]
  14. JANUMET [Concomitant]
  15. METHOTREXATE [Concomitant]
  16. BYETTA [Concomitant]
  17. DOXAZOSIN [Concomitant]
  18. PROVIGIL [Concomitant]
  19. PREDNISONE TAB [Concomitant]
  20. INDERAL [Concomitant]
  21. FOLIC ACID [Concomitant]
  22. CEPHALEXIN [Concomitant]
  23. FLUOCINONIDE [Concomitant]
  24. CLOBETASOL PROPIONATE [Concomitant]
  25. GLIMEPIRIDE [Concomitant]
  26. LYRICA [Concomitant]
  27. CARISOPRODOL [Concomitant]
  28. VANIQA [Concomitant]
  29. MIRAPEX [Concomitant]
  30. AMOXICILLIN [Concomitant]
  31. OXYCODONE [Concomitant]
  32. ALPRAZOLAM [Concomitant]
  33. FLUOCINONIDE [Concomitant]
  34. CIPROFLAXACIN [Concomitant]
  35. PHENAZOPYRIDINE HCL TAB [Concomitant]
  36. OMNICEF [Concomitant]
  37. SKELAXIN [Concomitant]
  38. LEVAQUIN [Concomitant]
  39. METRONIDAZOLE [Concomitant]
  40. ONDANSETRON [Concomitant]
  41. POTASSIUM CHLORIDE [Concomitant]
  42. DOXYCYCLINE [Concomitant]
  43. PROAIR HFA [Concomitant]
  44. AVELOX [Concomitant]
  45. LEXAPRO [Concomitant]
  46. ASTELIN [Concomitant]
  47. HYDROCODONE [Concomitant]
  48. ASMANEX TWISTHALER [Concomitant]
  49. CLOBETASOL PROPIONATE [Concomitant]
  50. DIPHENOXYLATE-ATRO [Concomitant]
  51. PANGESTYME [Concomitant]
  52. TRIAMCINOLONE [Concomitant]
  53. NASONEX [Concomitant]
  54. SIMVASTATIN [Concomitant]
  55. METOLAZONE [Concomitant]
  56. LUNESTA [Concomitant]
  57. HYDROMORPHONE HCL [Concomitant]
  58. PENICILLIN [Concomitant]
  59. CLIMARA [Concomitant]
  60. CATAPRES [Concomitant]
  61. CHOLINE MAG TRISAL [Concomitant]
  62. CLONAZEPAM [Concomitant]
  63. AVINZA [Concomitant]
  64. ENDOCET [Concomitant]
  65. AZITHROMYCIN [Concomitant]
  66. .............................. [Concomitant]
  67. ECONAZOLE NITRATE [Concomitant]
  68. METHYLIN [Concomitant]
  69. DIPHENOXYLATE [Concomitant]
  70. AEROCHAMBER INHALER [Concomitant]
  71. LIDOCAINE [Concomitant]
  72. MORPHINE SULFATE [Concomitant]
  73. NYSTATIN [Concomitant]
  74. ESTRADIOL [Concomitant]
  75. VOLTAREN [Concomitant]

REACTIONS (7)
  - DEHYDRATION [None]
  - HYPOTENSION [None]
  - INTERVERTEBRAL DISC PROTRUSION [None]
  - NAUSEA [None]
  - SPONDYLOLISTHESIS [None]
  - THERAPEUTIC AGENT TOXICITY [None]
  - VOMITING [None]
